FAERS Safety Report 17297273 (Version 2)
Quarter: 2021Q1

REPORT INFORMATION
  Report Type: Other
  Country: US (occurrence: US)
  Receive Date: 20200122
  Receipt Date: 20210210
  Transmission Date: 20210419
  Serious: Yes (Hospitalization)
  Sender: FDA-Public Use
  Company Number: US-ROCHE-2521346

PATIENT
  Sex: Female

DRUGS (3)
  1. OCREVUS [Suspect]
     Active Substance: OCRELIZUMAB
     Indication: RELAPSING MULTIPLE SCLEROSIS
     Route: 042
     Dates: start: 20170919, end: 20171003
  2. OCREVUS [Suspect]
     Active Substance: OCRELIZUMAB
     Dosage: MOST RECENT DOSES OF OCRELIZUMAB: 13/AUG/2018, 15/JAN/2019, 10/JUL/2019,
     Route: 042
     Dates: start: 20180320
  3. GABAPENTIN. [Suspect]
     Active Substance: GABAPENTIN
     Indication: NERVOUS SYSTEM DISORDER
     Route: 065

REACTIONS (15)
  - Pneumonia [Not Recovered/Not Resolved]
  - Colitis ischaemic [Unknown]
  - Disturbance in attention [Not Recovered/Not Resolved]
  - Fatigue [Unknown]
  - Eye disorder [Unknown]
  - Nausea [Recovered/Resolved]
  - Multiple sclerosis relapse [Unknown]
  - Lung disorder [Unknown]
  - Liver function test abnormal [Unknown]
  - Asthenia [Not Recovered/Not Resolved]
  - Drug ineffective [Unknown]
  - Memory impairment [Not Recovered/Not Resolved]
  - Neutrophil count abnormal [Unknown]
  - Cough [Not Recovered/Not Resolved]
  - White blood cell count abnormal [Unknown]

NARRATIVE: CASE EVENT DATE: 2018
